FAERS Safety Report 4404308-5 (Version None)
Quarter: 2004Q3

REPORT INFORMATION
  Report Type: 
  Country: None (occurrence: None)
  Receive Date: 20040721
  Receipt Date: 20040721
  Transmission Date: 20050211
  Serious: Yes (Hospitalization)
  Sender: FDA-Public Use
  Company Number: None

PATIENT
  Age: 82 Year
  Sex: Male

DRUGS (9)
  1. METOPROLOL [Suspect]
     Indication: ATRIAL FIBRILLATION
     Dosage: 25 BID
  2. METOPROLOL [Suspect]
     Indication: HYPERTENSION
     Dosage: 25 BID
  3. DIGOXIN [Suspect]
     Dosage: .125 QD
  4. DILTIAZEM [Suspect]
     Dosage: 60 MG QID
  5. OMEPRAZOLE [Concomitant]
  6. ALBUTEROL [Concomitant]
  7. ATROVENT [Concomitant]
  8. SIMVASTATIN [Concomitant]
  9. LISINOPRIL [Concomitant]

REACTIONS (4)
  - ATRIOVENTRICULAR BLOCK [None]
  - DIZZINESS [None]
  - SINUS BRADYCARDIA [None]
  - SYNCOPE [None]
